FAERS Safety Report 6734163-X (Version None)
Quarter: 2010Q2

REPORT INFORMATION
  Report Type: 
  Country: None (occurrence: None)
  Receive Date: 20100520
  Receipt Date: 20100511
  Transmission Date: 20101027
  Serious: Yes (Hospitalization)
  Sender: FDA-Public Use
  Company Number: GXKR2010DE05354

PATIENT
  Age: 43 Year
  Sex: Female

DRUGS (3)
  1. RISPERIDONE [Suspect]
     Indication: SCHIZOPHRENIA
     Dosage: 6 MG, QD
  2. CLOZAPINE [Suspect]
     Dosage: 600 MG, QD
     Route: 065
  3. CLOZAPINE [Suspect]
     Dosage: 575 MG, UNK
     Route: 065

REACTIONS (4)
  - CHROMATURIA [None]
  - HEPATIC ENZYME INCREASED [None]
  - HEPATITIS [None]
  - JAUNDICE [None]
